FAERS Safety Report 5375999-X (Version None)
Quarter: 2007Q2

REPORT INFORMATION
  Report Type: 
  Country: None (occurrence: None)
  Receive Date: 20070627
  Receipt Date: 20070627
  Transmission Date: 20071010
  Serious: No
  Sender: FDA-Public Use
  Company Number: None

PATIENT
  Age: 46 Year
  Sex: Male
  Weight: 92 kg

DRUGS (3)
  1. REMICADE [Suspect]
     Indication: CROHN'S DISEASE
     Dosage: 460MG Q8WKS IV
     Route: 042
     Dates: start: 20060626
  2. TYLENOL [Concomitant]
  3. BENADRYL [Concomitant]

REACTIONS (2)
  - PRURITUS [None]
  - RASH [None]
